FAERS Safety Report 7285338-5 (Version None)
Quarter: 2011Q1

REPORT INFORMATION
  Report Type: 
  Country: None (occurrence: None)
  Receive Date: 20110121
  Receipt Date: 20081202
  Transmission Date: 20110831
  Serious: No
  Sender: FDA-Public Use
  Company Number: 08-230

PATIENT
  Age: 29 Year
  Sex: Female

DRUGS (2)
  1. PROZAC [Suspect]
  2. FAZACLO ODT [Suspect]
     Dosage: 200 MG DAILY PO
     Route: 048
     Dates: start: 20060601, end: 20080912

REACTIONS (2)
  - DRUG INTERACTION [None]
  - DRUG LEVEL INCREASED [None]
